FAERS Safety Report 8848370 (Version 1)
Quarter: 2012Q4

REPORT INFORMATION
  Report Type: 
  Country: CA (occurrence: CA)
  Receive Date: 20121018
  Receipt Date: 20121018
  Transmission Date: 20130627
  Serious: Yes (Hospitalization, Other)
  Sender: FDA-Public Use
  Company Number: PHHY2008CA05565

PATIENT
  Sex: Male

DRUGS (1)
  1. SANDOSTATIN LAR [Suspect]
     Indication: PANCREATITIS ACUTE
     Dosage: 20 mg, QMO
     Route: 030
     Dates: start: 20080229

REACTIONS (7)
  - Pancreatic abscess [Unknown]
  - Pyrexia [Unknown]
  - Pain [Unknown]
  - Confusional state [Unknown]
  - Memory impairment [Unknown]
  - Blood pressure increased [Unknown]
  - Heart rate decreased [Unknown]
